FAERS Safety Report 8818043 (Version 2)
Quarter: 2012Q4

REPORT INFORMATION
  Report Type: 
  Country: US (occurrence: US)
  Receive Date: 20121001
  Receipt Date: 20121121
  Transmission Date: 20130627
  Serious: Yes (Death)
  Sender: FDA-Public Use
  Company Number: US-PFIZER INC-2012240364

PATIENT
  Age: 45 Year
  Sex: Male

DRUGS (8)
  1. RAPAMUNE [Suspect]
     Indication: ORGAN TRANSPLANT
     Dosage: 7 mg, ^PD^
     Route: 048
     Dates: start: 200905, end: 20120923
  2. LORTAB [Concomitant]
     Dosage: 10 Q 4 hrs PRN
  3. METOPROLOL [Concomitant]
     Dosage: 100 mg, 2x/day
  4. TOPAMAX [Concomitant]
     Dosage: 50 mg, 2x/day
  5. KEPPRA [Concomitant]
     Dosage: 1000 mg, 2x/day
  6. VALIUM [Concomitant]
     Dosage: 10 mg, 2x/day
  7. LEXAPRO [Concomitant]
     Dosage: 10 mg, Daily
  8. DILANTIN [Concomitant]
     Dosage: 100 mg, daily

REACTIONS (2)
  - Off label use [Fatal]
  - Death [Fatal]
